FAERS Safety Report 14873304 (Version 1)
Quarter: 2018Q2

REPORT INFORMATION
  Report Type: Spontaneous
  Country: US (occurrence: US)
  Receive Date: 20180424
  Receipt Date: 20180424
  Transmission Date: 20180711
  Serious: Yes (Hospitalization)
  Sender: FDA-Public Use
  Company Number: None

PATIENT
  Age: 40 Year
  Sex: Female

DRUGS (1)
  1. TEMOZOLOMIDE 250MG SANDOZ [Suspect]
     Active Substance: TEMOZOLOMIDE
     Indication: BRAIN NEOPLASM MALIGNANT
     Dosage: 290MG DAILY FOR 5 DAYS ORAL
     Route: 048
     Dates: start: 20171208

REACTIONS (4)
  - Dyspnoea [None]
  - Hypersensitivity [None]
  - Urticaria [None]
  - Pyrexia [None]

NARRATIVE: CASE EVENT DATE: 20180315
